FAERS Safety Report 9559266 (Version 2)
Quarter: 2013Q3

REPORT INFORMATION
  Report Type: Report from Study
  Country: BD (occurrence: BD)
  Receive Date: 20130927
  Receipt Date: 20130927
  Transmission Date: 20140515
  Serious: Yes (Death)
  Sender: FDA-Public Use
  Company Number: PHHY2013BD106721

PATIENT
  Age: 68 Year
  Sex: Female

DRUGS (1)
  1. EXELON PATCH [Suspect]
     Indication: DEMENTIA
     Dosage: 10 CM (9.5MG/24HOURS), DAILY
     Route: 062
     Dates: start: 201304

REACTIONS (2)
  - Cerebrovascular accident [Fatal]
  - Dehydration [Fatal]
